FAERS Safety Report 13595078 (Version 6)
Quarter: 2018Q1

REPORT INFORMATION
  Report Type: Spontaneous
  Country: NO (occurrence: NO)
  Receive Date: 20170531
  Receipt Date: 20180124
  Transmission Date: 20180508
  Serious: Yes (Other)
  Sender: FDA-Public Use
  Company Number: NO-ROCHE-1941051

PATIENT

DRUGS (1)
  1. AVASTIN [Suspect]
     Active Substance: BEVACIZUMAB
     Indication: NEOVASCULAR AGE-RELATED MACULAR DEGENERATION
     Route: 050
     Dates: start: 20170523

REACTIONS (4)
  - Inadequate aseptic technique in use of product [Unknown]
  - Poor quality drug administered [Unknown]
  - Off label use [Unknown]
  - Endophthalmitis [Recovering/Resolving]
